FAERS Safety Report 8775150 (Version 1)
Quarter: 2012Q4

REPORT INFORMATION
  Report Type: 
  Country: US (occurrence: US)
  Receive Date: 20120910
  Receipt Date: 20120910
  Transmission Date: 20130627
  Serious: Yes (Hospitalization)
  Sender: FDA-Public Use
  Company Number: US-ACTELION-A-NJ2012-71027

PATIENT
  Age: 52 Year
  Sex: Female

DRUGS (5)
  1. TRACLEER [Suspect]
     Indication: PULMONARY ARTERIAL HYPERTENSION
     Dosage: UNK
     Route: 048
  2. ADCIRCA [Concomitant]
  3. FLOLAN [Concomitant]
  4. LASIX [Concomitant]
  5. BUMEX [Concomitant]

REACTIONS (5)
  - Nausea [Unknown]
  - Back pain [Unknown]
  - Feeling hot [Unknown]
  - Headache [Unknown]
  - Cough [Unknown]
